FAERS Safety Report 8915849 (Version 1)
Quarter: 2012Q4

REPORT INFORMATION
  Report Type: 
  Country: SE (occurrence: SE)
  Receive Date: 20121119
  Receipt Date: 20121119
  Transmission Date: 20130627
  Serious: Yes (Hospitalization)
  Sender: FDA-Public Use
  Company Number: SE-PFIZER INC-2012284817

PATIENT
  Age: 85 Year
  Sex: Male
  Weight: 97.7 kg

DRUGS (11)
  1. GENOTROPIN [Suspect]
     Dosage: 0.1 mg, 1x/day,7 injections/week
     Route: 058
     Dates: start: 20070524
  2. RANITIDINE [Concomitant]
     Indication: OESOPHAGITIS
     Dosage: UNK
     Dates: start: 19920101
  3. ACETYLSALICYLSYRA [Concomitant]
     Indication: ANGINA PECTORIS
     Dosage: UNK
     Dates: start: 19920101
  4. ZANTAC [Concomitant]
     Indication: OESOPHAGITIS
     Dosage: UNK
     Dates: start: 19940608
  5. ISOSORBIDE MONONITRATE [Concomitant]
     Indication: ANGINA PECTORIS
     Dosage: UNK
     Dates: start: 19961001
  6. LEVAXIN [Concomitant]
     Indication: TSH DECREASED
     Dosage: UNK
     Dates: start: 19971209
  7. LEVAXIN [Concomitant]
     Indication: PRIMARY HYPOTHYROIDISM
  8. LOSEC [Concomitant]
     Indication: OESOPHAGITIS
     Dosage: UNK
     Dates: start: 19980201
  9. HIRUDOID [Concomitant]
     Indication: THROMBOPHLEBITIS
     Dosage: UNK
     Dates: start: 19980619
  10. BEHEPAN [Concomitant]
     Indication: VITAMIN B COMPLEX DEFICIENCY
     Dosage: UNK
     Dates: start: 20000912
  11. CITALOPRAM [Concomitant]
     Indication: DEPRESSION
     Dosage: UNK
     Dates: start: 20060715

REACTIONS (2)
  - Chest pain [Unknown]
  - Diaphragmatic hernia [Unknown]
